FAERS Safety Report 5017224-5 (Version None)
Quarter: 2006Q2

REPORT INFORMATION
  Report Type: 
  Country: None (occurrence: None)
  Receive Date: 20060602
  Receipt Date: 20060523
  Transmission Date: 20061013
  Serious: Yes (Other)
  Sender: FDA-Public Use
  Company Number: VN-ABBOTT-06P-179-0334620-00

PATIENT
  Sex: Female
  Weight: 55 kg

DRUGS (1)
  1. REDUCTIL 10MG [Suspect]
     Indication: WEIGHT CONTROL
     Route: 048
     Dates: start: 20060510, end: 20060519

REACTIONS (4)
  - DYSPEPSIA [None]
  - FATIGUE [None]
  - PALPITATIONS [None]
  - PEPTIC ULCER HAEMORRHAGE [None]
